FAERS Safety Report 4565935-8 (Version None)
Quarter: 2005Q1

REPORT INFORMATION
  Report Type: 
  Country: None (occurrence: None)
  Receive Date: 20050131
  Receipt Date: 20050124
  Transmission Date: 20050727
  Serious: Yes (Hospitalization)
  Sender: FDA-Public Use
  Company Number: CA-MERCK-0501CAN00121

PATIENT
  Sex: Female

DRUGS (2)
  1. ALDOMET [Suspect]
     Indication: PREGNANCY INDUCED HYPERTENSION
     Route: 048
  2. ALDOMET [Suspect]
     Route: 048

REACTIONS (1)
  - OBSESSIVE THOUGHTS [None]
